FAERS Safety Report 7913783-0 (Version None)
Quarter: 2011Q4

REPORT INFORMATION
  Report Type: 
  Country: None (occurrence: None)
  Receive Date: 20111115
  Receipt Date: 20111114
  Transmission Date: 20120403
  Serious: No
  Sender: FDA-Public Use
  Company Number: US-BAYER-2011-109892

PATIENT
  Age: 51 Year
  Sex: Female
  Weight: 152 kg

DRUGS (9)
  1. ZOLOFT [Concomitant]
  2. TRILEPTAL [Concomitant]
  3. VITAMIN TAB [Concomitant]
  4. TIZANIDINE HCL [Concomitant]
  5. AMBIEN [Concomitant]
  6. BETASERON [Suspect]
     Dosage: 0.25 MG, QOD
     Route: 058
  7. FAMPRIDINE [Concomitant]
  8. CALCIUM [Concomitant]
  9. BACLOFEN [Concomitant]

REACTIONS (1)
  - ASTHENIA [None]
